FAERS Safety Report 7947082-8 (Version None)
Quarter: 2011Q4

REPORT INFORMATION
  Report Type: 
  Country: None (occurrence: None)
  Receive Date: 20111129
  Receipt Date: 20110706
  Transmission Date: 20120403
  Serious: No
  Sender: FDA-Public Use
  Company Number: US-ASTRAZENECA-2011SE40310

PATIENT
  Age: 72 Year
  Sex: Male

DRUGS (1)
  1. VIMOVO [Suspect]
     Indication: OSTEOARTHRITIS
     Dosage: 500-20MG, TWO TIMES A DAY
     Route: 048
     Dates: start: 20110601, end: 20110601

REACTIONS (2)
  - ENDOSCOPY GASTROINTESTINAL [None]
  - DUODENAL ULCER [None]
